FAERS Safety Report 12701406 (Version 2)
Quarter: 2016Q3

REPORT INFORMATION
  Report Type: Spontaneous
  Country: US (occurrence: US)
  Receive Date: 20160831
  Receipt Date: 20160907
  Transmission Date: 20161109
  Serious: No
  Sender: FDA-Public Use
  Company Number: US-PFIZER INC-2016397554

PATIENT
  Age: 91 Year
  Sex: Female
  Weight: 77 kg

DRUGS (2)
  1. PREMARIN [Suspect]
     Active Substance: ESTROGENS, CONJUGATED
     Indication: HOT FLUSH
     Dosage: 0.625 MG, DAILY (EVERY DAY)
     Route: 048
     Dates: start: 1975
  2. PREMARIN [Suspect]
     Active Substance: ESTROGENS, CONJUGATED
     Dosage: 0.625 MG, ALTERNATE DAY

REACTIONS (3)
  - Intentional product misuse [Not Recovered/Not Resolved]
  - Angiopathy [Recovering/Resolving]
  - Pruritus [Not Recovered/Not Resolved]

NARRATIVE: CASE EVENT DATE: 20160817
